FAERS Safety Report 24551054 (Version 1)
Quarter: 2024Q4

REPORT INFORMATION
  Report Type: Spontaneous
  Country: IT (occurrence: IT)
  Receive Date: 20241025
  Receipt Date: 20241025
  Transmission Date: 20250115
  Serious: Yes (Hospitalization, Other)
  Sender: BRISTOL-MYERS SQUIBB COMPANY
  Company Number: IT-BRISTOL-MYERS SQUIBB COMPANY-2024-167406

PATIENT
  Age: 52 Year
  Sex: Female

DRUGS (1)
  1. ZEPOSIA [Suspect]
     Active Substance: OZANIMOD HYDROCHLORIDE
     Indication: Multiple sclerosis
     Dosage: DOSE AND FREQUENCY: UNAVAILABLE
     Dates: start: 202304

REACTIONS (1)
  - Atrial fibrillation [Unknown]
